FAERS Safety Report 12757225 (Version 1)
Quarter: 2016Q3

REPORT INFORMATION
  Report Type: Report from Study
  Country: FR (occurrence: FR)
  Receive Date: 20160919
  Receipt Date: 20160919
  Transmission Date: 20161109
  Serious: Yes (Hospitalization, Other)
  Sender: FDA-Public Use
  Company Number: FR-ROCHE-1557049

PATIENT
  Sex: Female

DRUGS (13)
  1. RITUXIMAB [Suspect]
     Active Substance: RITUXIMAB
     Route: 042
     Dates: end: 20050110
  2. RITUXIMAB [Suspect]
     Active Substance: RITUXIMAB
     Indication: RHEUMATOID ARTHRITIS
     Route: 042
     Dates: start: 20040723
  3. RITUXIMAB [Suspect]
     Active Substance: RITUXIMAB
     Route: 042
     Dates: start: 20040806
  4. HYDROXYCHLOROQUINE [Concomitant]
     Active Substance: HYDROXYCHLOROQUINE
     Route: 065
     Dates: end: 20061005
  5. SALAZOPYRINE [Concomitant]
     Active Substance: SULFASALAZINE
     Route: 065
     Dates: start: 20080430
  6. CORTANCYL [Concomitant]
     Active Substance: PREDNISONE
  7. HUMIRA [Concomitant]
     Active Substance: ADALIMUMAB
  8. ENDOXAN [Concomitant]
     Active Substance: CYCLOPHOSPHAMIDE
     Route: 065
     Dates: start: 20081211
  9. METHOTREXATE. [Concomitant]
     Active Substance: METHOTREXATE
     Route: 065
     Dates: start: 20090324
  10. PARACETAMOL [Concomitant]
     Active Substance: ACETAMINOPHEN
  11. TOCILIZUMAB [Suspect]
     Active Substance: TOCILIZUMAB
     Indication: RHEUMATOID ARTHRITIS
     Route: 042
     Dates: start: 20091209
  12. METHYLPREDNISOLONE. [Concomitant]
     Active Substance: METHYLPREDNISOLONE
     Route: 065
  13. INFLIXIMAB [Concomitant]
     Active Substance: INFLIXIMAB
     Route: 065
     Dates: start: 20050512

REACTIONS (14)
  - Drug intolerance [Unknown]
  - Cataract [Unknown]
  - Embolism [Recovered/Resolved]
  - Infusion related reaction [Recovered/Resolved]
  - Diabetes mellitus [Unknown]
  - Herpes zoster [Unknown]
  - Cholecystitis acute [Recovered/Resolved]
  - Invasive ductal breast carcinoma [Unknown]
  - Nasal herpes [Unknown]
  - Thyroid cyst [Unknown]
  - Osteoporotic fracture [Unknown]
  - Tibia fracture [Recovered/Resolved]
  - Sleep disorder [Unknown]
  - Medical device site abscess [Recovered/Resolved]

NARRATIVE: CASE EVENT DATE: 20040723
